FAERS Safety Report 24033644 (Version 1)
Quarter: 2024Q3

REPORT INFORMATION
  Report Type: Spontaneous
  Country: GB (occurrence: GB)
  Receive Date: 20240701
  Receipt Date: 20240701
  Transmission Date: 20241017
  Serious: Yes (Disabling, Other)
  Sender: AMGEN
  Company Number: None

PATIENT
  Age: 10 Year
  Sex: Female
  Weight: 46 kg

DRUGS (10)
  1. ETANERCEPT [Suspect]
     Active Substance: ETANERCEPT
     Indication: Juvenile idiopathic arthritis
     Dosage: UNK
     Route: 058
     Dates: start: 20220809
  2. ADALIMUMAB [Suspect]
     Active Substance: ADALIMUMAB\ISOPROPYL ALCOHOL
     Indication: Juvenile idiopathic arthritis
     Dosage: 40 MG, CYCLIC (ONCE EVERY TWO WEEKS)
     Route: 065
     Dates: start: 20230921, end: 20240119
  3. METHOTREXATE SODIUM [Suspect]
     Active Substance: METHOTREXATE SODIUM
     Indication: Juvenile idiopathic arthritis
     Dosage: UNK
     Route: 065
     Dates: start: 20190125
  4. ETANERCEPT [Concomitant]
     Active Substance: ETANERCEPT
     Indication: Juvenile idiopathic arthritis
     Dosage: UNK
     Route: 065
     Dates: start: 20220809, end: 20230907
  5. METHOTREXATE [Concomitant]
     Active Substance: METHOTREXATE
     Indication: Juvenile idiopathic arthritis
     Dosage: UNK
     Route: 065
     Dates: start: 20190125
  6. IBUPROFEN [Concomitant]
     Active Substance: IBUPROFEN
     Indication: Pain
     Dosage: UNK
     Route: 065
  7. LANSOPRAZOLE [Concomitant]
     Active Substance: LANSOPRAZOLE
     Dosage: UNK
     Route: 065
  8. FOLIC ACID [Concomitant]
     Active Substance: FOLIC ACID
     Dosage: UNK
     Route: 065
  9. DEXAMETHASONE [Concomitant]
     Active Substance: DEXAMETHASONE
     Indication: Adverse drug reaction
     Dosage: UNK
     Route: 065
  10. ADALIMUMAB [Concomitant]
     Active Substance: ADALIMUMAB\ISOPROPYL ALCOHOL
     Indication: Juvenile idiopathic arthritis
     Dosage: UNK
     Route: 065
     Dates: start: 20230923, end: 20240119

REACTIONS (7)
  - Hallucination, auditory [Recovering/Resolving]
  - Demyelination [Not Recovered/Not Resolved]
  - CSF test abnormal [Not Recovered/Not Resolved]
  - Hallucination, visual [Recovered/Resolved]
  - Disturbance in attention [Unknown]
  - Insomnia [Unknown]
  - Condition aggravated [Unknown]

NARRATIVE: CASE EVENT DATE: 20231001
